FAERS Safety Report 4463907-5 (Version None)
Quarter: 2004Q4

REPORT INFORMATION
  Report Type: 
  Country: None (occurrence: None)
  Receive Date: 20041001
  Receipt Date: 20040805
  Transmission Date: 20050328
  Serious: Yes (Other)
  Sender: FDA-Public Use
  Company Number: 200415956US

PATIENT
  Sex: Female
  Weight: 51.8 kg

DRUGS (7)
  1. ARAVA [Suspect]
     Indication: RHEUMATOID ARTHRITIS
     Dates: start: 20040715, end: 20040720
  2. ENBREL [Concomitant]
     Indication: RHEUMATOID ARTHRITIS
     Dosage: DOSE: UNKNOWN
  3. PAXIL [Concomitant]
     Dosage: DOSE: UNKNOWN
  4. DIOVAN [Concomitant]
     Indication: BLOOD PRESSURE
     Dosage: DOSE: UNKNOWN
  5. HYDROCHLOROTHIAZIDE [Concomitant]
     Dosage: DOSE: UNKNOWN
  6. ASPIRIN [Concomitant]
     Indication: THROMBOSIS PROPHYLAXIS
  7. LEVOXYL [Concomitant]
     Indication: THYROID DISORDER

REACTIONS (2)
  - DYSPNOEA [None]
  - LUNG DISORDER [None]
